FAERS Safety Report 15342394 (Version 2)
Quarter: 2018Q3

REPORT INFORMATION
  Report Type: Spontaneous
  Country: NL (occurrence: NL)
  Receive Date: 20180902
  Receipt Date: 20180905
  Transmission Date: 20181010
  Serious: Yes (Hospitalization)
  Sender: FDA-Public Use
  Company Number: PHHY2018NL087599

PATIENT
  Age: 55 Year
  Sex: Female
  Weight: 79.8 kg

DRUGS (3)
  1. CARBOPLATIN. [Suspect]
     Active Substance: CARBOPLATIN
     Indication: TRANSITIONAL CELL CARCINOMA
     Dosage: 440 MG, CYCLIC (1950 MG, 1X PER 3 WEEKS CYCLE)
     Route: 042
     Dates: start: 20180628
  2. AVELUMAB [Suspect]
     Active Substance: AVELUMAB
     Indication: TRANSITIONAL CELL CARCINOMA
     Dosage: 850 MG, CYCLIC, ONCE PER TWO WEEKS
     Route: 042
     Dates: start: 20171122, end: 20180523
  3. GEMCITABINE HYDROCHLORIDE. [Suspect]
     Active Substance: GEMCITABINE HYDROCHLORIDE
     Indication: TRANSITIONAL CELL CARCINOMA
     Dosage: 1950 MG, CYCLIC(2X/PER 3 WEEKS CYCLE )
     Route: 042
     Dates: start: 20180628

REACTIONS (1)
  - Febrile neutropenia [Recovering/Resolving]

NARRATIVE: CASE EVENT DATE: 20180711
